FAERS Safety Report 9681675 (Version 2)
Quarter: 2014Q3

REPORT INFORMATION
  Report Type: Spontaneous
  Country: GB (occurrence: GB)
  Receive Date: 20131111
  Receipt Date: 20140804
  Transmission Date: 20150326
  Serious: Yes (Disabling)
  Sender: FDA-Public Use
  Company Number: GB-TEVA-442435ISR

PATIENT
  Age: 87 Year
  Sex: Male

DRUGS (7)
  1. MEMANTINE [Suspect]
     Active Substance: MEMANTINE
     Route: 048
  2. PROPRANOLOL [Concomitant]
     Active Substance: PROPRANOLOL\PROPRANOLOL HYDROCHLORIDE
     Indication: HYPERTENSION
     Dosage: 4 MILLIGRAM DAILY; ONGOING THERAPY
     Route: 048
  3. MEMANTINE [Suspect]
     Active Substance: MEMANTINE
     Indication: DEMENTIA ALZHEIMER^S TYPE
     Route: 048
     Dates: start: 20130727, end: 20131004
  4. ASPIRIN. [Concomitant]
     Active Substance: ASPIRIN
     Indication: HYPERTENSION
     Dosage: 75 MILLIGRAM DAILY;
     Route: 048
  5. COCODAMOL [Concomitant]
     Active Substance: ACETAMINOPHEN\CODEINE PHOSPHATE
     Indication: PAIN
     Route: 048
  6. SIMVASTATIN. [Concomitant]
     Active Substance: SIMVASTATIN
     Indication: HYPERLIPIDAEMIA
     Dosage: 10 MILLIGRAM DAILY; ONGOING THERAPY
     Route: 048
  7. RAMIPRIL. [Concomitant]
     Active Substance: RAMIPRIL
     Indication: HYPERTENSION
     Dosage: 5 MILLIGRAM DAILY; ONGOING THERAPY
     Route: 048

REACTIONS (4)
  - Condition aggravated [Recovering/Resolving]
  - Sensory disturbance [Recovering/Resolving]
  - Constipation [Recovering/Resolving]
  - Essential tremor [Recovering/Resolving]

NARRATIVE: CASE EVENT DATE: 20130730
